FAERS Safety Report 11232185 (Version 1)
Quarter: 2015Q2

REPORT INFORMATION
  Report Type: Spontaneous
  Country: US (occurrence: None)
  Receive Date: 20150630
  Receipt Date: 20150630
  Transmission Date: 20150821
  Serious: No
  Sender: FDA-Public Use
  Company Number: None

PATIENT

DRUGS (1)
  1. AVYCAZ [Suspect]
     Active Substance: AVIBACTAM SODIUM\CEFTAZIDIME
     Dosage: INJECTABLE, INTRAVENOUS INFUSION, 2G/0.5 G PER VITAL, SINGLE USE VIAL, 10 SINGLE USE VIALS
     Route: 042

REACTIONS (2)
  - Circumstance or information capable of leading to medication error [None]
  - Product name confusion [None]
